FAERS Safety Report 6250017-X (Version None)
Quarter: 2009Q2

REPORT INFORMATION
  Report Type: 
  Country: None (occurrence: None)
  Receive Date: 20090629
  Receipt Date: 20090617
  Transmission Date: 20091009
  Serious: Yes (Other)
  Sender: FDA-Public Use
  Company Number: PHHY2009FR17279

PATIENT
  Sex: Male

DRUGS (9)
  1. CERTICAN [Suspect]
     Indication: HEART TRANSPLANT
     Dosage: 0.5 MG, BID
     Route: 048
     Dates: start: 20090409, end: 20090430
  2. CELLCEPT [Concomitant]
     Indication: HEART TRANSPLANT
     Dosage: 1.5 G, BID
     Route: 048
     Dates: start: 20040101
  3. SOLUPRED [Concomitant]
     Indication: HEART TRANSPLANT
     Dosage: 5 MG, QD
     Route: 048
     Dates: start: 20040101
  4. KARDEGIC [Concomitant]
     Indication: HEART TRANSPLANT
     Dosage: 160 MG, QD
     Route: 048
     Dates: start: 20040101
  5. PRAVASTATIN [Concomitant]
     Indication: HEART TRANSPLANT
     Dosage: 40 MG, QD
     Route: 048
     Dates: start: 20040101
  6. EZETROL [Concomitant]
     Indication: HEART TRANSPLANT
     Dosage: 10 MG, QD
     Route: 048
     Dates: start: 20060101
  7. ATENOLOL [Concomitant]
     Indication: HEART TRANSPLANT
     Dosage: 50 MG, QD
     Route: 048
     Dates: start: 20060101
  8. CALTRATE [Concomitant]
     Indication: HEART TRANSPLANT
     Dosage: 1000 MG, QD
     Dates: start: 20040101
  9. CORTICOSTEROID NOS [Concomitant]

REACTIONS (4)
  - DERMATITIS ALLERGIC [None]
  - MUSCULOSKELETAL PAIN [None]
  - PRURITUS [None]
  - RASH MACULO-PAPULAR [None]
